FAERS Safety Report 17488512 (Version 2)
Quarter: 2020Q1

REPORT INFORMATION
  Report Type: Spontaneous
  Country: PT (occurrence: PT)
  Receive Date: 20200303
  Receipt Date: 20200320
  Transmission Date: 20200409
  Serious: Yes (Life-Threatening, Hospitalization, Other)
  Sender: FDA-Public Use
  Company Number: PT-ACTELION-A-CH2020-202271

PATIENT
  Age: 50 Year
  Sex: Female

DRUGS (6)
  1. TREPROSTINIL. [Concomitant]
     Active Substance: TREPROSTINIL
     Indication: PRODUCT USED FOR UNKNOWN INDICATION
     Dosage: 0.046 MG, Q1HOUR
     Route: 058
  2. BOSENTAN. [Suspect]
     Active Substance: BOSENTAN
     Indication: PULMONARY HYPERTENSION
     Dosage: 250 MG, QD
     Route: 048
  3. PREDNISOLONE. [Concomitant]
     Active Substance: PREDNISOLONE
     Indication: PRODUCT USED FOR UNKNOWN INDICATION
     Dosage: 5 MG, QD
     Route: 065
  4. MYCOPHENOLATE MOFETIL. [Concomitant]
     Active Substance: MYCOPHENOLATE MOFETIL
     Indication: PRODUCT USED FOR UNKNOWN INDICATION
     Dosage: 2.5 G, QD
     Route: 065
  5. RIOCIGUAT. [Concomitant]
     Active Substance: RIOCIGUAT
     Indication: PRODUCT USED FOR UNKNOWN INDICATION
     Dosage: 6 MG, QD
     Route: 065
  6. HYDROXYCHLOROQUINE [Concomitant]
     Active Substance: HYDROXYCHLOROQUINE
     Indication: PRODUCT USED FOR UNKNOWN INDICATION
     Dosage: 400 MG, QD
     Route: 065

REACTIONS (16)
  - Cardiac tamponade [Recovered/Resolved]
  - Concomitant disease aggravated [Recovered/Resolved]
  - Dyspnoea paroxysmal nocturnal [Recovering/Resolving]
  - Pericardial effusion [Recovering/Resolving]
  - Heart sounds abnormal [Recovering/Resolving]
  - Cardiomegaly [Recovering/Resolving]
  - Dyspnoea exertional [Recovering/Resolving]
  - Electrocardiogram QRS complex abnormal [Recovering/Resolving]
  - Pleural effusion [Unknown]
  - Oedema peripheral [Unknown]
  - Pericardial drainage [Unknown]
  - Cardiogenic shock [Recovered/Resolved]
  - Serositis [Unknown]
  - Rales [Recovering/Resolving]
  - Prohormone brain natriuretic peptide increased [Recovering/Resolving]
  - Pericardiotomy [Unknown]
